FAERS Safety Report 5609841-6 (Version None)
Quarter: 2008Q1

REPORT INFORMATION
  Report Type: 
  Country: None (occurrence: None)
  Receive Date: 20080129
  Receipt Date: 20080117
  Transmission Date: 20080703
  Serious: Yes (Hospitalization)
  Sender: FDA-Public Use
  Company Number: 2007BI022652

PATIENT
  Age: 55 Year
  Sex: Female

DRUGS (11)
  1. AVONEX [Suspect]
     Indication: MULTIPLE SCLEROSIS
     Dosage: 30 UG;QW;IM
     Route: 030
     Dates: start: 20060401
  2. POTASSIUM CHLORIDE [Concomitant]
  3. TYLENOL (CAPLET) [Concomitant]
  4. BACLOFEN [Concomitant]
  5. ZETIA [Concomitant]
  6. DETROL [Concomitant]
  7. TRIAMTERENE [Concomitant]
  8. GLUCOTROL [Concomitant]
  9. PROPRANOLOL [Concomitant]
  10. JANUVIA [Concomitant]
  11. NORVASE [Concomitant]

REACTIONS (4)
  - OVARIAN ADENOMA [None]
  - POST PROCEDURAL COMPLICATION [None]
  - SUTURE RUPTURE [None]
  - WOUND EVISCERATION [None]
